FAERS Safety Report 7770712-0 (Version None)
Quarter: 2011Q3

REPORT INFORMATION
  Report Type: 
  Country: None (occurrence: None)
  Receive Date: 20110922
  Receipt Date: 20101027
  Transmission Date: 20111222
  Serious: No
  Sender: FDA-Public Use
  Company Number: US-ASTRAZENECA-2010SE51040

PATIENT
  Age: 85 Year
  Sex: Female
  Weight: 63.5 kg

DRUGS (10)
  1. LASIX [Concomitant]
     Dosage: DAILY
     Route: 048
  2. MACRODANTIN [Concomitant]
     Indication: PROPHYLAXIS URINARY TRACT INFECTION
     Route: 048
  3. SYNTHROID [Concomitant]
     Route: 048
  4. SEROQUEL [Suspect]
     Indication: BIPOLAR DISORDER
     Dosage: 100 MG QAM, 100 MG 4 PM QD AND 400 MG HS
     Route: 048
     Dates: start: 20080401
  5. LITHIUM CARBONATE [Concomitant]
     Indication: SCHIZOPHRENIA
     Route: 048
  6. EYE DROPS [Concomitant]
     Indication: GLAUCOMA
     Route: 050
  7. TRICOR [Concomitant]
     Dosage: DAILY
     Route: 048
  8. SEROQUEL [Suspect]
     Indication: SCHIZOPHRENIA
     Dosage: 100 MG QAM, 100 MG 4 PM QD AND 400 MG HS
     Route: 048
     Dates: start: 20080401
  9. SPIRONOLACTONE [Concomitant]
     Dosage: DAILY
     Route: 048
  10. ZETIA [Concomitant]
     Indication: LIPIDS INCREASED
     Dosage: DAILY
     Route: 048

REACTIONS (3)
  - DEMENTIA [None]
  - HALLUCINATION, AUDITORY [None]
  - FALL [None]
